FAERS Safety Report 6767769-2 (Version None)
Quarter: 2010Q2

REPORT INFORMATION
  Report Type: 
  Country: None (occurrence: None)
  Receive Date: 20100614
  Receipt Date: 20100531
  Transmission Date: 20101027
  Serious: Yes (Hospitalization)
  Sender: FDA-Public Use
  Company Number: PHHY2010CN37341

PATIENT
  Age: 68 Year
  Sex: Male

DRUGS (1)
  1. CARBAMAZEPINE [Suspect]
     Dosage: 80 DF, ONCE/SINGLE
     Route: 048

REACTIONS (13)
  - BRAIN OEDEMA [None]
  - COMA [None]
  - CONJUNCTIVAL OEDEMA [None]
  - DRUG LEVEL INCREASED [None]
  - DRUG TOXICITY [None]
  - HAEMOPERFUSION [None]
  - HYPOREFLEXIA [None]
  - HYPOTONIA [None]
  - LIVER FUNCTION TEST ABNORMAL [None]
  - OVERDOSE [None]
  - RESPIRATORY DEPRESSION [None]
  - VOMITING [None]
  - WHEEZING [None]
